APPROVED DRUG PRODUCT: RANITIDINE HYDROCHLORIDE
Active Ingredient: RANITIDINE HYDROCHLORIDE
Strength: EQ 150MG BASE
Dosage Form/Route: TABLET;ORAL
Application: A203694 | Product #001
Applicant: MPP PHARMA LLC
Approved: Nov 30, 2017 | RLD: No | RS: No | Type: DISCN